FAERS Safety Report 4391746-2 (Version None)
Quarter: 2004Q3

REPORT INFORMATION
  Report Type: 
  Country: None (occurrence: None)
  Receive Date: 20040707
  Receipt Date: 20040514
  Transmission Date: 20050211
  Serious: Yes (Hospitalization)
  Sender: FDA-Public Use
  Company Number: FR-MERCK-0405FRA00047

PATIENT
  Age: 35 Year
  Sex: Male
  Weight: 61 kg

DRUGS (3)
  1. FOSAMAX [Suspect]
     Indication: OSTEOGENESIS IMPERFECTA
     Route: 048
     Dates: start: 20021121, end: 20030915
  2. FOSAMAX [Suspect]
     Route: 048
     Dates: start: 20030916, end: 20030925
  3. FLUINDIONE [Concomitant]
     Indication: CARDIAC VALVE DISEASE
     Route: 048

REACTIONS (3)
  - DIVERTICULITIS [None]
  - LARGE INTESTINE PERFORATION [None]
  - MEDICATION ERROR [None]
